FAERS Safety Report 13596386 (Version 2)
Quarter: 2017Q2

REPORT INFORMATION
  Report Type: Report from Study
  Country: AU (occurrence: AU)
  Receive Date: 20170531
  Receipt Date: 20170628
  Transmission Date: 20170830
  Serious: Yes (Other)
  Sender: FDA-Public Use
  Company Number: AU-AMGEN-AUSSL2017038069

PATIENT
  Age: 73 Year
  Sex: Female
  Weight: 82.99 kg

DRUGS (5)
  1. ROSUZET COMPOSITE PACK [Concomitant]
     Active Substance: EZETIMIBE\ROSUVASTATIN
     Indication: TYPE IIA HYPERLIPIDAEMIA
     Dosage: 10/40,MG, QD
     Dates: start: 2007
  2. REPATHA [Suspect]
     Active Substance: EVOLOCUMAB
     Indication: TYPE IIA HYPERLIPIDAEMIA
     Dosage: 140 MG, Q2WK
     Route: 058
     Dates: start: 20161202
  3. REPATHA [Suspect]
     Active Substance: EVOLOCUMAB
     Indication: CORONARY ARTERY DISEASE
  4. ASPIRIN. [Concomitant]
     Active Substance: ASPIRIN
     Dosage: 300 MG, UNK
  5. CARDIZEM [Concomitant]
     Active Substance: DILTIAZEM HYDROCHLORIDE
     Indication: ANGINA PECTORIS
     Dosage: 180 MG, UNK

REACTIONS (4)
  - Pain in extremity [Recovering/Resolving]
  - Musculoskeletal pain [Recovering/Resolving]
  - Diverticulitis [Unknown]
  - Arthralgia [Recovering/Resolving]

NARRATIVE: CASE EVENT DATE: 201612
